FAERS Safety Report 8202889-7 (Version None)
Quarter: 2012Q1

REPORT INFORMATION
  Report Type: 
  Country: None (occurrence: None)
  Receive Date: 20120312
  Receipt Date: 20120312
  Transmission Date: 20120608
  Serious: Yes (Other)
  Sender: FDA-Public Use
  Company Number: None

PATIENT
  Age: 56 Year
  Sex: Female
  Weight: 79.378 kg

DRUGS (1)
  1. VIVELLE-DOT [Suspect]
     Indication: BLOOD OESTROGEN DECREASED
     Route: 061
     Dates: start: 20111222, end: 20120209

REACTIONS (8)
  - VOMITING [None]
  - FOREIGN BODY [None]
  - GASTROOESOPHAGEAL REFLUX DISEASE [None]
  - ACNE [None]
  - WEIGHT INCREASED [None]
  - CROHN'S DISEASE [None]
  - OESOPHAGEAL STENOSIS [None]
  - CONDITION AGGRAVATED [None]
